FAERS Safety Report 17955979 (Version 1)
Quarter: 2020Q2

REPORT INFORMATION
  Report Type: Spontaneous
  Country: US (occurrence: US)
  Receive Date: 20200629
  Receipt Date: 20200629
  Transmission Date: 20200714
  Serious: No
  Sender: FDA-Public Use
  Company Number: US-PFIZER INC-2020246587

PATIENT
  Age: 69 Year
  Sex: Female
  Weight: 102.06 kg

DRUGS (1)
  1. PREGABALIN. [Suspect]
     Active Substance: PREGABALIN
     Indication: NEUROPATHY PERIPHERAL
     Dosage: 450 MG, DAILY (THREE CAPSULES OF 150 MG AT BED TIME)
     Route: 048
     Dates: start: 201908

REACTIONS (1)
  - Drug ineffective [Unknown]
